FAERS Safety Report 7650278-6 (Version None)
Quarter: 2011Q3

REPORT INFORMATION
  Report Type: 
  Country: None (occurrence: None)
  Receive Date: 20110802
  Receipt Date: 20110719
  Transmission Date: 20111222
  Serious: Yes (Hospitalization)
  Sender: FDA-Public Use
  Company Number: DE-ROCHE-793445

PATIENT
  Sex: Male
  Weight: 71.5 kg

DRUGS (2)
  1. AVASTIN [Suspect]
     Indication: BRONCHIAL CARCINOMA
     Route: 042
     Dates: start: 20110428, end: 20110630
  2. RIBOCARBO [Concomitant]
     Indication: BRONCHIAL CARCINOMA
     Dosage: DOSING AMOUNT ACCORDING AREA UNDER THE CURVE (AUC5)
     Route: 042
     Dates: start: 20110428, end: 20110630

REACTIONS (1)
  - GENERAL PHYSICAL HEALTH DETERIORATION [None]
